FAERS Safety Report 18936609 (Version 1)
Quarter: 2021Q1

REPORT INFORMATION
  Report Type: Spontaneous
  Country: US (occurrence: US)
  Receive Date: 20210224
  Receipt Date: 20210224
  Transmission Date: 20210420
  Serious: No
  Sender: FDA-Public Use
  Company Number: US-TERSERA THERAPEUTICS LLC-2020TRS003089

PATIENT

DRUGS (3)
  1. PRIALT [Suspect]
     Active Substance: ZICONOTIDE ACETATE
     Dosage: 2.776 MCG, QD
     Route: 037
  2. PRIALT [Suspect]
     Active Substance: ZICONOTIDE ACETATE
     Indication: PAIN
     Dosage: 2.76 MCG, QD (CONCENTRATION:10 MCG/ML)
     Route: 037
     Dates: start: 202009
  3. BUPIVACAINE. [Suspect]
     Active Substance: BUPIVACAINE
     Indication: PAIN
     Dosage: 2 MG, QD (CONCENTRATION:7.2MG/ML)
     Route: 037
     Dates: start: 202009

REACTIONS (2)
  - Off label use [Unknown]
  - Implant site extravasation [Recovered/Resolved]

NARRATIVE: CASE EVENT DATE: 202009
